FAERS Safety Report 7809173-1 (Version None)
Quarter: 2011Q4

REPORT INFORMATION
  Report Type: 
  Country: None (occurrence: None)
  Receive Date: 20111012
  Receipt Date: 20100301
  Transmission Date: 20120403
  Serious: Yes (Other)
  Sender: FDA-Public Use
  Company Number: AU-UCBSA-000535

PATIENT
  Age: 54 Year

DRUGS (5)
  1. PERINDOPRIL ERBUMINE [Concomitant]
  2. DOTHIEPIN HYDROCHLORIDE [Concomitant]
  3. INDAPAMIDE [Concomitant]
  4. ACETAMINOPHEN AND CODEINE PHOSPHATE [Suspect]
     Dosage: 8-20 TABLETS OF CODEINE 30 MG AND PARACETAMOL 500 MG IN COMBINATION DAILY
     Route: 048
  5. ATORVASTATIN [Concomitant]

REACTIONS (5)
  - LIVER FUNCTION TEST ABNORMAL [None]
  - MACROCYTOSIS [None]
  - MEDICATION ERROR [None]
  - DEAFNESS NEUROSENSORY [None]
  - TINNITUS [None]
